FAERS Safety Report 23055271 (Version 1)
Quarter: 2023Q4

REPORT INFORMATION
  Report Type: Report from Study
  Country: CO (occurrence: None)
  Receive Date: 20231011
  Receipt Date: 20231011
  Transmission Date: 20240109
  Serious: Yes (Hospitalization, Other)
  Sender: FDA-Public Use
  Company Number: 2023A226534

PATIENT
  Age: 58 Year
  Sex: Female
  Weight: 58 kg

DRUGS (1)
  1. LYNPARZA [Suspect]
     Active Substance: OLAPARIB
     Indication: Metastases to ovary
     Route: 048
     Dates: start: 20221022

REACTIONS (2)
  - Speech disorder [Recovering/Resolving]
  - Brain injury [Recovering/Resolving]

NARRATIVE: CASE EVENT DATE: 20230929
